FAERS Safety Report 5647819-7 (Version None)
Quarter: 2008Q1

REPORT INFORMATION
  Report Type: 
  Country: None (occurrence: None)
  Receive Date: 20080303
  Receipt Date: 20080222
  Transmission Date: 20080703
  Serious: Yes (Congenital Anomaly)
  Sender: FDA-Public Use
  Company Number: US-BOEHRINGER INGELHEIM GMBH, GERMANY-2007-BP-26963BP

PATIENT
  Sex: Male
  Weight: 2.1 kg

DRUGS (5)
  1. VIRAMUNE [Suspect]
     Indication: HIV INFECTION
     Route: 015
     Dates: start: 20070529, end: 20071022
  2. ATRIPLA [Suspect]
     Indication: HIV INFECTION
     Dosage: EFAVIRENZ 600/ FTC 200/TDF 300 MG
     Route: 015
     Dates: start: 20061219, end: 20070529
  3. TRUVADA [Suspect]
     Indication: HIV INFECTION
     Dosage: FTC 200 / TDF 300 MG
     Route: 015
     Dates: start: 20070529, end: 20071022
  4. KALETRA [Suspect]
     Indication: HIV INFECTION
     Dosage: LPV 800/ RTV 200 MG
     Route: 015
     Dates: start: 20071023, end: 20071205
  5. TRIZIVIR [Suspect]
     Indication: HIV INFECTION
     Dosage: ABC/LMV/ZVD 300/150/300 MG
     Route: 015
     Dates: start: 20071023, end: 20071205

REACTIONS (1)
  - HIP DYSPLASIA [None]
